FAERS Safety Report 11812397 (Version 1)
Quarter: 2015Q4

REPORT INFORMATION
  Report Type: Spontaneous
  Country: CN (occurrence: CN)
  Receive Date: 20151208
  Receipt Date: 20151208
  Transmission Date: 20160305
  Serious: Yes (Hospitalization, Other)
  Sender: FDA-Public Use
  Company Number: CN-GILEAD-2015-0185947

PATIENT
  Age: 55 Year
  Sex: Male

DRUGS (3)
  1. HEPSERA [Suspect]
     Active Substance: ADEFOVIR DIPIVOXIL
     Indication: ANTIVIRAL TREATMENT
     Dosage: 20 MG, QD
     Route: 065
  2. LAMIVUDINE. [Concomitant]
     Active Substance: LAMIVUDINE
     Indication: ALANINE AMINOTRANSFERASE INCREASED
     Dosage: 100 MG, QD
     Route: 065
  3. LAMIVUDINE. [Concomitant]
     Active Substance: LAMIVUDINE
     Indication: ANTIVIRAL TREATMENT

REACTIONS (8)
  - Viral mutation identified [Unknown]
  - Fanconi syndrome acquired [Unknown]
  - Metabolic acidosis [Unknown]
  - Renal osteodystrophy [Unknown]
  - Osteomalacia [Unknown]
  - Arthralgia [Unknown]
  - Gait disturbance [Unknown]
  - Hepatic function abnormal [Unknown]

NARRATIVE: CASE EVENT DATE: 2006
